FAERS Safety Report 7344524-6 (Version None)
Quarter: 2011Q1

REPORT INFORMATION
  Report Type: 
  Country: None (occurrence: None)
  Receive Date: 20110310
  Receipt Date: 20110309
  Transmission Date: 20110831
  Serious: Yes (Hospitalization)
  Sender: FDA-Public Use
  Company Number: GXKR2009DE02870

PATIENT
  Age: 106 Year
  Sex: Female

DRUGS (8)
  1. REKAWAN [Concomitant]
     Indication: RENAL IMPAIRMENT
     Dosage: 600 MG, BID
     Route: 048
  2. FURORESE [Suspect]
     Dosage: 40-20-0 MG
  3. NEXIUM [Concomitant]
     Indication: PROPHYLAXIS AGAINST GASTROINTESTINAL ULCER
     Dosage: 20 MG, QD
     Route: 048
  4. ALLOPURINOL [Concomitant]
     Indication: RENAL IMPAIRMENT
     Dosage: 100 MG, QD
     Route: 048
  5. FURORESE [Suspect]
     Indication: RENAL IMPAIRMENT
     Dosage: 120 MG, UNK
     Route: 048
     Dates: start: 20071201, end: 20080606
  6. AQUAPHOR TABLET [Suspect]
     Indication: HYPERTENSION
     Dosage: 10 MG, QD
     Route: 048
     Dates: start: 20071201, end: 20080606
  7. INSULIN ACTRAPHANE HUMAN [Concomitant]
     Indication: TYPE 2 DIABETES MELLITUS
     Dosage: 40 IU, UNK
     Route: 058
  8. BONDIOL [Concomitant]
     Indication: RENAL IMPAIRMENT
     Dosage: 0.25 UG, QD
     Route: 048

REACTIONS (1)
  - RENAL FAILURE [None]
